FAERS Safety Report 23480359 (Version 1)
Quarter: 2024Q1

REPORT INFORMATION
  Report Type: Spontaneous
  Country: GB (occurrence: GB)
  Receive Date: 20240205
  Receipt Date: 20240205
  Transmission Date: 20240410
  Serious: No
  Sender: FDA-Public Use
  Company Number: None

PATIENT
  Age: 78 Year
  Sex: Female
  Weight: 70 kg

DRUGS (7)
  1. EZETIMIBE [Suspect]
     Active Substance: EZETIMIBE
     Indication: Blood cholesterol increased
     Dosage: 1 DOSAGE FORM, QD (1 DAY)
     Route: 065
     Dates: start: 20231009
  2. COMIRNATY (RAXTOZINAMERAN) [Concomitant]
     Active Substance: RAXTOZINAMERAN
     Indication: Product used for unknown indication
     Dosage: 0.3 MILLILITER
     Route: 030
     Dates: start: 20231012
  3. Flexitol heel balm [Concomitant]
     Indication: Product used for unknown indication
     Dosage: 500 GRAM (APPLY TOFEET AND ANKLE ONE TO THREE TIMES A DAY)
     Route: 065
     Dates: start: 20230921, end: 20231103
  4. FLUCLOXACILLIN [Concomitant]
     Active Substance: FLUCLOXACILLIN
     Indication: Product used for unknown indication
     Dosage: UNK, QID (ONE TO BE TAKEN FOUR TIMES A DAY)
     Route: 065
     Dates: start: 20230907, end: 20231006
  5. HYDROCORTISONE [Concomitant]
     Active Substance: HYDROCORTISONE
     Indication: Product used for unknown indication
     Dosage: 30 GRAM, BID (APPLY THINLY TWICE A DAY AS DIRECTED)
     Route: 065
     Dates: start: 20231019
  6. MICONAZOLE [Concomitant]
     Active Substance: MICONAZOLE
     Indication: Product used for unknown indication
     Dosage: 30 GRAM (APPLY THINLY TWICE A DAY AS DIRECTED)
     Route: 065
     Dates: start: 20231019
  7. ROSUVASTATIN [Concomitant]
     Active Substance: ROSUVASTATIN
     Indication: Product used for unknown indication
     Dosage: UNK (TWICE A WEEK THEN GRADUALLY INCREASE IF NO SIDE EFFECTS TO ALTERNATE DAYS, THEN DAILY)
     Route: 065
     Dates: start: 20231106

REACTIONS (1)
  - Diarrhoea [Recovered/Resolved]

NARRATIVE: CASE EVENT DATE: 20231010
